FAERS Safety Report 15434451 (Version 2)
Quarter: 2018Q4

REPORT INFORMATION
  Report Type: Report from Study
  Country: EC (occurrence: EC)
  Receive Date: 20180927
  Receipt Date: 20181010
  Transmission Date: 20190204
  Serious: Yes (Hospitalization)
  Sender: FDA-Public Use
  Company Number: PHHY2018EC105004

PATIENT
  Age: 83 Year
  Sex: Male
  Weight: 72.4 kg

DRUGS (3)
  1. FUROSEMIDE. [Concomitant]
     Active Substance: FUROSEMIDE
     Indication: FLUID RETENTION
     Dosage: 0.5 DF, QD (HALF TABLET DAILY)
     Route: 048
     Dates: start: 201804
  2. DIGOXIN. [Concomitant]
     Active Substance: DIGOXIN
     Indication: CARDIAC DISORDER
     Dosage: 0.5 DF, QD (HALF TABLET DAILY)
     Route: 048
     Dates: start: 201804
  3. ENTRESTO [Suspect]
     Active Substance: SACUBITRIL\VALSARTAN
     Indication: CARDIAC FAILURE
     Dosage: 50 MG, BID
     Route: 048
     Dates: start: 20180417

REACTIONS (8)
  - Hypoacusis [Unknown]
  - Dizziness [Unknown]
  - Pain [Recovering/Resolving]
  - Fall [Recovering/Resolving]
  - Accident [Recovering/Resolving]
  - Chest pain [Recovered/Resolved]
  - Fibula fracture [Recovering/Resolving]
  - Cough [Unknown]

NARRATIVE: CASE EVENT DATE: 20180817
